FAERS Safety Report 24046188 (Version 3)
Quarter: 2024Q4

REPORT INFORMATION
  Report Type: Spontaneous
  Country: US (occurrence: US)
  Receive Date: 20240703
  Receipt Date: 20241105
  Transmission Date: 20250115
  Serious: Yes (Hospitalization, Other)
  Sender: SANOFI AVENTIS
  Company Number: US-SA-SAC20240702000223

PATIENT
  Age: 70 Year
  Sex: Female
  Weight: 53.18 kg

DRUGS (11)
  1. DUPIXENT [Suspect]
     Active Substance: DUPILUMAB
     Indication: Dermatitis allergic
     Dosage: 300 MG, QOW
     Route: 058
  2. DUPIXENT [Suspect]
     Active Substance: DUPILUMAB
     Indication: Eczema
  3. CICLOPIROX [Suspect]
     Active Substance: CICLOPIROX
     Dosage: UNK
  4. ASPIRIN [Concomitant]
     Active Substance: ASPIRIN
     Dosage: UNK
  5. CALCIUM [Concomitant]
     Active Substance: CALCIUM
     Dosage: UNK
  6. VITAMIN D3 [Concomitant]
     Active Substance: CHOLECALCIFEROL
     Dosage: UNK
  7. AMLODIPINE [Concomitant]
     Active Substance: AMLODIPINE BESYLATE
     Dosage: UNK
     Route: 048
  8. NIACIN [Concomitant]
     Active Substance: NIACIN
     Dosage: UNK
  9. CEPHALEXIN [Concomitant]
     Active Substance: CEPHALEXIN
     Dosage: 1 DF, Q8H
     Route: 048
  10. LEVOTHYROXINE [Concomitant]
     Active Substance: LEVOTHYROXINE
     Dosage: 1 DF; FREQUENCY: QAM
     Route: 048
  11. MAXEPA [DOCOSAHEXAENOIC ACID;EICOSAPENTAENOIC ACID] [Concomitant]
     Dosage: UNK

REACTIONS (21)
  - Intracranial aneurysm [Recovering/Resolving]
  - Basal cell carcinoma [Recovered/Resolved]
  - Cellulitis [Unknown]
  - Skin ulcer [Not Recovered/Not Resolved]
  - Skin lesion [Not Recovered/Not Resolved]
  - Rash papular [Not Recovered/Not Resolved]
  - Erythema [Not Recovered/Not Resolved]
  - Pruritus [Not Recovered/Not Resolved]
  - Feeling hot [Not Recovered/Not Resolved]
  - Xerosis [Unknown]
  - Dry skin [Unknown]
  - Actinic elastosis [Unknown]
  - Melanocytic naevus [Unknown]
  - Haemangioma of skin [Unknown]
  - Seborrhoeic keratosis [Unknown]
  - Solar lentigo [Unknown]
  - Photosensitivity reaction [Unknown]
  - Peripheral venous disease [Unknown]
  - Pruritus [Recovering/Resolving]
  - Oedema [Recovering/Resolving]
  - Rash [Not Recovered/Not Resolved]

NARRATIVE: CASE EVENT DATE: 20230101
